FAERS Safety Report 5383294-8 (Version None)
Quarter: 2007Q3

REPORT INFORMATION
  Report Type: 
  Country: None (occurrence: None)
  Receive Date: 20070705
  Receipt Date: 20070622
  Transmission Date: 20080115
  Serious: Yes (Other)
  Sender: FDA-Public Use
  Company Number: FEI2007-1109

PATIENT
  Age: 30 Year
  Sex: Female

DRUGS (1)
  1. COPPER T [Suspect]
     Indication: CONTRACEPTION
     Dosage: INTRA-UTERINE
     Route: 015
     Dates: start: 19900101

REACTIONS (7)
  - CALCULUS BLADDER [None]
  - DYSURIA [None]
  - HAEMATURIA [None]
  - IUD MIGRATION [None]
  - POLLAKIURIA [None]
  - PREGNANCY WITH CONTRACEPTIVE DEVICE [None]
  - UTERINE PERFORATION [None]
